FAERS Safety Report 20750208 (Version 1)
Quarter: 2022Q2

REPORT INFORMATION
  Report Type: Spontaneous
  Country: JP (occurrence: JP)
  Receive Date: 20220426
  Receipt Date: 20220426
  Transmission Date: 20220721
  Serious: Yes (Other)
  Sender: FDA-Public Use
  Company Number: JP-UCBSA-2022023736

PATIENT

DRUGS (1)
  1. LEVETIRACETAM [Suspect]
     Active Substance: LEVETIRACETAM
     Indication: Epilepsy
     Dosage: UNK
     Route: 041

REACTIONS (6)
  - Cytopenia [Unknown]
  - Hallucination [Unknown]
  - Renal impairment [Unknown]
  - Epilepsy [Unknown]
  - Delusion [Unknown]
  - Somnolence [Unknown]
